FAERS Safety Report 8245159-3 (Version None)
Quarter: 2012Q1

REPORT INFORMATION
  Report Type: 
  Country: None (occurrence: None)
  Receive Date: 20120329
  Receipt Date: 20111214
  Transmission Date: 20120608
  Serious: Yes (Other)
  Sender: FDA-Public Use
  Company Number: TR-US-EMD SERONO, INC.-7071086

PATIENT
  Sex: Male
  Weight: 80 kg

DRUGS (2)
  1. REBIF [Suspect]
     Route: 058
     Dates: start: 20100818, end: 20101214
  2. REBIF [Suspect]
     Indication: RELAPSING-REMITTING MULTIPLE SCLEROSIS
     Route: 058
     Dates: start: 20100826, end: 20110402

REACTIONS (1)
  - PANCYTOPENIA [None]
